FAERS Safety Report 24227266 (Version 2)
Quarter: 2024Q3

REPORT INFORMATION
  Report Type: Spontaneous
  Country: IN (occurrence: IN)
  Receive Date: 20240820
  Receipt Date: 20240827
  Transmission Date: 20241017
  Serious: Yes (Death, Other)
  Sender: PFIZER
  Company Number: IN-PFIZER INC-PV202400107124

PATIENT
  Age: 62 Year
  Sex: Male

DRUGS (2)
  1. METHYLPREDNISOLONE [Suspect]
     Active Substance: METHYLPREDNISOLONE
     Indication: Immunosuppression
     Dosage: UNK
  2. TACROLIMUS [Suspect]
     Active Substance: TACROLIMUS
     Indication: Immunosuppression
     Dosage: UNK

REACTIONS (8)
  - Klebsiella bacteraemia [Fatal]
  - Acinetobacter bacteraemia [Fatal]
  - Cytomegalovirus viraemia [Fatal]
  - Septic shock [Fatal]
  - Ascites [Fatal]
  - Pleural effusion [Fatal]
  - Protothecosis [Fatal]
  - Multiple organ dysfunction syndrome [Fatal]
